FAERS Safety Report 9502838 (Version 2)
Quarter: 2013Q3

REPORT INFORMATION
  Report Type: Spontaneous
  Country: DE (occurrence: DE)
  Receive Date: 20130906
  Receipt Date: 20130906
  Transmission Date: 20140515
  Serious: Yes (Congenital Anomaly)
  Sender: FDA-Public Use
  Company Number: DE-JNJFOC-JAGER38677

PATIENT
  Age: 0 Day
  Sex: Female
  Weight: 2.94 kg

DRUGS (1)
  1. VERMOX [Suspect]
     Indication: ENTEROBIASIS
     Route: 064

REACTIONS (2)
  - Joint dislocation [Unknown]
  - Foetal exposure during pregnancy [Recovered/Resolved]
